FAERS Safety Report 8208638-0 (Version None)
Quarter: 2012Q1

REPORT INFORMATION
  Report Type: 
  Country: None (occurrence: None)
  Receive Date: 20120314
  Receipt Date: 20120305
  Transmission Date: 20120608
  Serious: Yes (Hospitalization)
  Sender: FDA-Public Use
  Company Number: JP-ASTRAZENECA-2012SE15436

PATIENT
  Sex: Female

DRUGS (1)
  1. FASLODEX [Suspect]
     Route: 030
     Dates: start: 20120224

REACTIONS (2)
  - RENAL IMPAIRMENT [None]
  - GENERAL PHYSICAL HEALTH DETERIORATION [None]
